FAERS Safety Report 5633048-X (Version None)
Quarter: 2008Q1

REPORT INFORMATION
  Report Type: 
  Country: None (occurrence: None)
  Receive Date: 20080214
  Receipt Date: 20080129
  Transmission Date: 20080703
  Serious: Yes (Death, Other)
  Sender: FDA-Public Use
  Company Number: 2008JP000131

PATIENT
  Age: 31 Year
  Sex: Female

DRUGS (8)
  1. PROGRAF [Suspect]
     Indication: STEM CELL TRANSPLANT
     Dosage: 0.02 MG/KG, D
     Dates: start: 20050215
  2. METHOTREXATE [Concomitant]
  3. METHYLPREDNISOLONE [Concomitant]
  4. GANCICLOVIR [Concomitant]
  5. TOSUFLOXACIN (TOSUFLOXACIN) [Concomitant]
  6. FLUCONAZOLE [Concomitant]
  7. TRIMETOPRIM +SULFAMETOXAZOL (SULFAMETHOXAZOLE, TRIMETHOPRIM) [Concomitant]
  8. MEROPENEM (MEROPENEM) [Concomitant]

REACTIONS (9)
  - BRONCHOPULMONARY ASPERGILLOSIS [None]
  - CYTOMEGALOVIRUS INFECTION [None]
  - DIABETES MELLITUS [None]
  - DIABETIC KETOACIDOSIS [None]
  - ENTEROBACTER SEPSIS [None]
  - FEBRILE NEUTROPENIA [None]
  - GENERAL PHYSICAL HEALTH DETERIORATION [None]
  - GRAFT VERSUS HOST DISEASE [None]
  - RESPIRATORY FAILURE [None]
